FAERS Safety Report 17846248 (Version 1)
Quarter: 2020Q2

REPORT INFORMATION
  Report Type: Report from Study
  Country: IT (occurrence: IT)
  Receive Date: 20200601
  Receipt Date: 20200601
  Transmission Date: 20200714
  Serious: Yes (Hospitalization)
  Sender: FDA-Public Use
  Company Number: IT-PFIZER INC-2020211924

PATIENT
  Age: 71 Year
  Sex: Male
  Weight: 74 kg

DRUGS (9)
  1. RETACRIT [EPOETIN ZETA] [Concomitant]
     Active Substance: ERYTHROPOIETIN
     Dosage: 40000 KIU (40 000 IU/1 ML)
     Route: 058
     Dates: start: 20180904
  2. TAMSULOSINE EG [Concomitant]
     Active Substance: TAMSULOSIN HYDROCHLORIDE
     Dosage: 0.4 MG
     Route: 048
     Dates: start: 20200124
  3. FELODIPIN HEXAL [Concomitant]
     Active Substance: FELODIPINE
     Dosage: 5 MG
     Route: 048
     Dates: start: 20181004, end: 20200404
  4. CERCHIO [Concomitant]
     Active Substance: CETIRIZINE HYDROCHLORIDE
     Dosage: 10 MG
     Route: 048
     Dates: start: 20181128
  5. VINCRISTINA PFIZER ITALIA [Suspect]
     Active Substance: VINCRISTINE
     Indication: NON-HODGKIN^S LYMPHOMA
     Dosage: 2 MG, WEEKLY
     Route: 040
     Dates: start: 20200403, end: 20200403
  6. BACTRIM [Concomitant]
     Active Substance: SULFAMETHOXAZOLE\TRIMETHOPRIM
     Dosage: 800 MG
     Route: 048
     Dates: start: 20181128
  7. ZOFRAN [Concomitant]
     Active Substance: ONDANSETRON HYDROCHLORIDE
     Dosage: 8 MG
     Route: 048
     Dates: start: 20181004
  8. ZARZIO [Concomitant]
     Active Substance: FILGRASTIM
     Dosage: 300 UG (30 MU/0.5 ML)
     Route: 058
     Dates: start: 20181004
  9. ALLOPURINOL TEVA [Concomitant]
     Active Substance: ALLOPURINOL
     Dosage: 300 MG
     Route: 048
     Dates: start: 20180806, end: 20200405

REACTIONS (1)
  - Pancytopenia [Recovering/Resolving]

NARRATIVE: CASE EVENT DATE: 20200405
